FAERS Safety Report 8967753 (Version 1)
Quarter: 2012Q4

REPORT INFORMATION
  Report Type: Spontaneous
  Country: US (occurrence: None)
  Receive Date: 20121213
  Receipt Date: 20121213
  Transmission Date: 20130627
  Serious: Yes (Other)
  Sender: FDA-Public Use
  Company Number: None

PATIENT
  Age: 62 Year
  Sex: Female
  Weight: 77.11 kg

DRUGS (1)
  1. BONIVA [Suspect]
     Indication: OSTEOPENIA
     Route: 048
     Dates: start: 20121102, end: 20121204

REACTIONS (11)
  - Haematuria [None]
  - Influenza like illness [None]
  - Abdominal pain [None]
  - Back pain [None]
  - Pain [None]
  - Flatulence [None]
  - Constipation [None]
  - Dyspepsia [None]
  - Nausea [None]
  - Vomiting [None]
  - Diarrhoea [None]
